FAERS Safety Report 17526621 (Version 1)
Quarter: 2020Q1

REPORT INFORMATION
  Report Type: Spontaneous
  Country: US (occurrence: US)
  Receive Date: 20200311
  Receipt Date: 20200311
  Transmission Date: 20200409
  Serious: Yes (Life-Threatening, Hospitalization)
  Sender: FDA-Public Use
  Company Number: None

PATIENT
  Age: 28 Year
  Sex: Male
  Weight: 101.7 kg

DRUGS (4)
  1. CLOZAPINE. [Suspect]
     Active Substance: CLOZAPINE
     Indication: SCHIZOAFFECTIVE DISORDER
     Route: 048
     Dates: start: 20200224, end: 20200307
  2. BENZTROPINE 2 MG [Concomitant]
     Active Substance: BENZTROPINE
     Dates: start: 20200218
  3. HALOPERIDOL 10 MG 3 X DAILY [Concomitant]
     Dates: start: 20200221
  4. DIVALPROEX SODIUM (ER) [Concomitant]
     Dates: start: 20200218

REACTIONS (4)
  - Troponin increased [None]
  - Electrocardiogram T wave abnormal [None]
  - Myocarditis [None]
  - Nausea [None]

NARRATIVE: CASE EVENT DATE: 20200307
